FAERS Safety Report 17956608 (Version 1)
Quarter: 2020Q2

REPORT INFORMATION
  Report Type: Spontaneous
  Country: US (occurrence: US)
  Receive Date: 20200629
  Receipt Date: 20200629
  Transmission Date: 20200714
  Serious: No
  Sender: FDA-Public Use
  Company Number: US-MYLANLABS-2020M1057938

PATIENT
  Sex: Female

DRUGS (2)
  1. MIRTAZAPINE TABLETS, USP [Suspect]
     Active Substance: MIRTAZAPINE
     Indication: INSOMNIA
     Dosage: UNK UNK, QD (ONE TABLET A DAY )
     Route: 048
     Dates: start: 201912, end: 202001
  2. MIRTAZAPINE TABLETS, USP [Suspect]
     Active Substance: MIRTAZAPINE
     Indication: DEPRESSION

REACTIONS (6)
  - Restless legs syndrome [Recovered/Resolved]
  - Depression [Recovered/Resolved]
  - Feeling abnormal [Recovered/Resolved]
  - Fatigue [Recovered/Resolved]
  - Off label use [Recovered/Resolved]
  - Insomnia [Recovered/Resolved]
